FAERS Safety Report 17622749 (Version 1)
Quarter: 2020Q2

REPORT INFORMATION
  Report Type: Spontaneous
  Country: US (occurrence: US)
  Receive Date: 20200403
  Receipt Date: 20200403
  Transmission Date: 20200713
  Serious: Yes (Hospitalization)
  Sender: FDA-Public Use
  Company Number: US-PERRIGO-20US004741

PATIENT
  Age: 27 Year
  Sex: Female

DRUGS (1)
  1. LOPERAMIDE HYDROCHLORIDE. [Suspect]
     Active Substance: LOPERAMIDE HYDROCHLORIDE
     Indication: DRUG ABUSE
     Dosage: 500 MG, UNKNOWN
     Route: 048

REACTIONS (4)
  - Drug abuse [Recovered/Resolved]
  - Torsade de pointes [Recovering/Resolving]
  - Ventricular tachycardia [Unknown]
  - Syncope [Unknown]
